FAERS Safety Report 4692845-8 (Version None)
Quarter: 2005Q2

REPORT INFORMATION
  Report Type: 
  Country: None (occurrence: None)
  Receive Date: 20050617
  Receipt Date: 20050609
  Transmission Date: 20051028
  Serious: Yes (Hospitalization)
  Sender: FDA-Public Use
  Company Number: PHBS2005BR08250

PATIENT
  Age: 6 Year
  Sex: Male

DRUGS (3)
  1. TEGRETOL [Suspect]
     Indication: EPILEPSY
  2. TEGRETOL [Suspect]
     Dosage: 5 ML, TID
     Route: 048
  3. TEGRETOL [Suspect]
     Dosage: 6 ML, TID
     Route: 048

REACTIONS (9)
  - AREFLEXIA [None]
  - ASPIRATION [None]
  - CONVULSION [None]
  - DIARRHOEA [None]
  - GASTROINTESTINAL INFECTION [None]
  - LOSS OF CONSCIOUSNESS [None]
  - PYREXIA [None]
  - RETCHING [None]
  - VOMITING [None]
